FAERS Safety Report 4917744-5 (Version None)
Quarter: 2006Q1

REPORT INFORMATION
  Report Type: 
  Country: None (occurrence: None)
  Receive Date: 20060221
  Receipt Date: 20060215
  Transmission Date: 20060701
  Serious: Yes (Death)
  Sender: FDA-Public Use
  Company Number: US-BRISTOL-MYERS SQUIBB COMPANY-13284781

PATIENT
  Age: 62 Year
  Sex: Male

DRUGS (11)
  1. CYTOXAN [Suspect]
     Indication: T-CELL LYMPHOMA
     Dates: start: 20050831
  2. NOVANTRONE [Concomitant]
     Indication: T-CELL LYMPHOMA
  3. VINCRISTINE [Concomitant]
     Indication: T-CELL LYMPHOMA
  4. PREDNISONE [Concomitant]
     Indication: T-CELL LYMPHOMA
  5. PROTONIX [Concomitant]
  6. FERROUS SULFATE TAB [Concomitant]
  7. NYSTATIN [Concomitant]
  8. ACTOS [Concomitant]
  9. GLYBURIDE AND METFORMIN HCL [Concomitant]
  10. ALLOPURINOL [Concomitant]
  11. GABAPENTIN [Concomitant]

REACTIONS (1)
  - DEATH [None]
